FAERS Safety Report 4564539-0 (Version None)
Quarter: 2005Q1

REPORT INFORMATION
  Report Type: 
  Country: None (occurrence: None)
  Receive Date: 20050126
  Receipt Date: 20050112
  Transmission Date: 20050727
  Serious: Yes (Hospitalization)
  Sender: FDA-Public Use
  Company Number: 6012579

PATIENT
  Age: 78 Year
  Sex: Male

DRUGS (7)
  1. LEVOTHYROXINE SODIUM [Suspect]
     Dosage: 150 MCG (50 MCG, 3 IN 1 D)
     Route: 048
     Dates: start: 20010615
  2. AVODART (CAPSULES) (DUTASTERIDE) [Suspect]
     Dosage: (DOSAGE FORMS 1 IN 1 D)
     Route: 048
     Dates: start: 20041115, end: 20050105
  3. PREVISCAN TABLETS (FLUINDIONE) [Suspect]
     Dosage: 10 MG (10 MG 1 IN 1 D)
     Route: 048
     Dates: start: 20040615, end: 20041231
  4. FERROUS SULFATE TAB [Suspect]
     Dosage: 80 MG (80 MG 1 IN 1 D)
     Dates: start: 20040615
  5. CORDARONE [Suspect]
     Dosage: 5,6143 MG (200 MG 1 IN 5 WK)
     Route: 048
     Dates: start: 20040615
  6. OMEPRAZOLE [Suspect]
     Dosage: 10 MG (10 MG 1 IN 1 D)
     Route: 048
     Dates: start: 20040615, end: 20050101
  7. ATARAX [Suspect]
     Dosage: 2 DOSAGE FORMS (1 DOSAGE FORMS 2 IN 1 D)
     Route: 048
     Dates: start: 20040612

REACTIONS (8)
  - C-REACTIVE PROTEIN INCREASED [None]
  - CORONARY ARTERY SURGERY [None]
  - DIALYSIS [None]
  - HYPERSENSITIVITY [None]
  - RASH MACULO-PAPULAR [None]
  - RASH PRURITIC [None]
  - RENAL FAILURE ACUTE [None]
  - URTICARIA [None]
